FAERS Safety Report 10222166 (Version 1)
Quarter: 2014Q2

REPORT INFORMATION
  Report Type: Spontaneous
  Country: US (occurrence: US)
  Receive Date: 20140606
  Receipt Date: 20140606
  Transmission Date: 20141212
  Serious: Yes (Death)
  Sender: FDA-Public Use
  Company Number: US-MALLINCKRODT-T201402375

PATIENT
  Age: 65 Year
  Sex: Male
  Weight: 36.28 kg

DRUGS (2)
  1. FENTANYL TRANSDERMAL SYSTEM [Suspect]
     Indication: CANCER PAIN
     Dosage: 100 UG/HR, 1 IN 72 HR
     Route: 062
  2. FENTANYL [Suspect]
     Indication: CANCER PAIN
     Dosage: 75 UG/HR, 1 IN 72 HR
     Route: 062

REACTIONS (1)
  - Pancreatic carcinoma [Fatal]
